FAERS Safety Report 7358925-3 (Version None)
Quarter: 2011Q1

REPORT INFORMATION
  Report Type: 
  Country: None (occurrence: None)
  Receive Date: 20110317
  Receipt Date: 20110311
  Transmission Date: 20110831
  Serious: Yes (Hospitalization)
  Sender: FDA-Public Use
  Company Number: US-BRISTOL-MYERS SQUIBB COMPANY-15603053

PATIENT

DRUGS (1)
  1. AVAPRO [Suspect]

REACTIONS (1)
  - GASTROINTESTINAL TUBE INSERTION [None]
